FAERS Safety Report 20123851 (Version 3)
Quarter: 2022Q2

REPORT INFORMATION
  Report Type: Spontaneous
  Country: JP (occurrence: JP)
  Receive Date: 20211129
  Receipt Date: 20220407
  Transmission Date: 20220720
  Serious: Yes (Hospitalization, Other)
  Sender: FDA-Public Use
  Company Number: JP-BEH-2021138846

PATIENT
  Age: 58 Year
  Sex: Male
  Weight: 69.3 kg

DRUGS (1)
  1. HIZENTRA [Suspect]
     Active Substance: HUMAN IMMUNOGLOBULIN G
     Indication: Chronic inflammatory demyelinating polyradiculoneuropathy
     Dosage: 7 VIALS (V), QW
     Route: 058
     Dates: end: 20210831

REACTIONS (3)
  - Sepsis [Fatal]
  - Pneumonia [Fatal]
  - Shunt occlusion [Fatal]

NARRATIVE: CASE EVENT DATE: 20211011
